FAERS Safety Report 7652975-5 (Version None)
Quarter: 2011Q3

REPORT INFORMATION
  Report Type: 
  Country: None (occurrence: None)
  Receive Date: 20110803
  Receipt Date: 20110802
  Transmission Date: 20111222
  Serious: Yes (Other)
  Sender: FDA-Public Use
  Company Number: CH-PFIZER INC-2011175654

PATIENT
  Age: 31 Year
  Sex: Female

DRUGS (8)
  1. ACETAMINOPHEN [Concomitant]
     Dosage: 1 G, 4X/DAY
     Route: 048
     Dates: start: 20101005
  2. MORPHINE [Suspect]
     Indication: PAIN
     Dosage: UNK
     Dates: start: 20100901
  3. NEXIUM [Concomitant]
     Dosage: 40 MG, 1X/DAY
     Route: 048
     Dates: start: 20101005
  4. IBRUPROFEN [Suspect]
     Indication: PAIN
     Dosage: 400 MG, EVERY 4 HRS
     Route: 048
     Dates: start: 20100801, end: 20100930
  5. LYRICA [Suspect]
     Indication: PAIN
     Dosage: UNK, TWICE DAILY
     Route: 048
     Dates: start: 20100901, end: 20100921
  6. PREDNISONE [Suspect]
     Dosage: 20 MG, 1X/DAY
     Route: 048
     Dates: start: 20101005
  7. TORADOL [Suspect]
     Indication: PAIN
     Dosage: 30 MG, 3X/DAY
     Route: 042
     Dates: start: 20100901, end: 20100905
  8. NOVALGIN [Suspect]
     Indication: PAIN
     Dosage: 500 MG, 1X/DAY
     Route: 048
     Dates: start: 20101005

REACTIONS (3)
  - SINUS TACHYCARDIA [None]
  - ANAEMIA OF PREGNANCY [None]
  - HYPERTENSION [None]
